FAERS Safety Report 12204898 (Version 1)
Quarter: 2016Q1

REPORT INFORMATION
  Report Type: Spontaneous
  Country: US (occurrence: US)
  Receive Date: 20160323
  Receipt Date: 20160323
  Transmission Date: 20160526
  Serious: Yes (Other)
  Sender: FDA-Public Use
  Company Number: US-REGENERON PHARMACEUTICALS, INC.-2016-14237

PATIENT

DRUGS (3)
  1. EYLEA [Suspect]
     Active Substance: AFLIBERCEPT
     Dosage: EVERY 6 WEEKS
     Route: 031
  2. EYLEA [Suspect]
     Active Substance: AFLIBERCEPT
     Indication: RETINAL VEIN OCCLUSION
     Dosage: UNK, MONTHLY
     Route: 031
     Dates: start: 2014
  3. EYLEA [Suspect]
     Active Substance: AFLIBERCEPT
     Dosage: UNK, MONTHLY
     Route: 031
     Dates: start: 2014

REACTIONS (6)
  - Stress [Unknown]
  - Eye swelling [Unknown]
  - Visual impairment [Unknown]
  - Depression [Unknown]
  - Eye haemorrhage [Unknown]
  - Eye oedema [Unknown]
